FAERS Safety Report 8775958 (Version 2)
Quarter: 2012Q4

REPORT INFORMATION
  Report Type: 
  Country: US (occurrence: US)
  Receive Date: 20120910
  Receipt Date: 20120919
  Transmission Date: 20130627
  Serious: Yes (Life-Threatening, Hospitalization)
  Sender: FDA-Public Use
  Company Number: US-MPIJNJ-2012-06282

PATIENT
  Age: 17 Year
  Sex: Male
  Weight: 80.5 kg

DRUGS (9)
  1. VELCADE [Suspect]
     Indication: ACUTE MYELOID LEUKAEMIA
     Dosage: 1.3 mg/m2, Cyclic
     Route: 040
     Dates: start: 20120615, end: 20120827
  2. CYTARABINE [Suspect]
     Indication: ACUTE MYELOID LEUKAEMIA
     Dosage: UNK, Cyclic
     Route: 037
     Dates: start: 20120615, end: 20120826
  3. CYTARABINE [Suspect]
     Dosage: 100 mg/m2, Cyclic
     Route: 042
     Dates: start: 20120615, end: 20120826
  4. CYTARABINE [Suspect]
     Dosage: 1000 mg/m2, Cyclic
     Route: 042
     Dates: start: 20120615, end: 20120826
  5. DAUNORUBICIN HYDROCHLORIDE [Suspect]
     Indication: ACUTE MYELOID LEUKAEMIA
     Dosage: 50 mg/m2, Cyclic
     Route: 042
     Dates: start: 20120615, end: 20120721
  6. ETOPOSIDE [Suspect]
     Indication: ACUTE MYELOID LEUKAEMIA
     Dosage: 100 mg/m2, Cyclic
     Route: 042
     Dates: start: 20120615, end: 20120826
  7. ETOPOSIDE [Suspect]
     Dosage: 150 mg/m2, Cyclic
     Route: 042
     Dates: start: 20120615, end: 20120826
  8. MITOXANTRONE HYDROCHLORIDE [Suspect]
     Indication: ACUTE MYELOID LEUKAEMIA
     Dosage: 12 mg/m2, Cyclic
     Route: 042
     Dates: start: 20120615
  9. SORAFENIB TOSYLATE [Suspect]
     Indication: ACUTE MYELOID LEUKAEMIA

REACTIONS (13)
  - Sepsis [Unknown]
  - Anaemia [Unknown]
  - Hypotension [Unknown]
  - Acidosis [Unknown]
  - Hypocalcaemia [Unknown]
  - Hypomagnesaemia [Unknown]
  - Left ventricular dysfunction [Unknown]
  - Respiratory failure [Unknown]
  - Alanine aminotransferase increased [Unknown]
  - Aspartate aminotransferase increased [Unknown]
  - Blood creatinine increased [Unknown]
  - Pyrexia [Unknown]
  - Renal failure acute [Unknown]
